FAERS Safety Report 9296042 (Version 1)
Quarter: 2013Q2

REPORT INFORMATION
  Report Type: Spontaneous
  Country: DE (occurrence: DE)
  Receive Date: 20130517
  Receipt Date: 20130517
  Transmission Date: 20140414
  Serious: Yes (Hospitalization)
  Sender: FDA-Public Use
  Company Number: GXKR2013DE001847

PATIENT
  Age: 61 Year
  Sex: Male

DRUGS (7)
  1. CEFUROXIME [Suspect]
     Dosage: UNK UKN, UNK
     Route: 042
     Dates: start: 20130113, end: 20130114
  2. CLINDAMYCIN [Suspect]
     Dosage: UNK UKN, UNK
     Route: 042
     Dates: start: 20130113
  3. CO-DIOVAN [Suspect]
     Indication: HYPERTENSION
     Route: 048
  4. TAZOBAC [Suspect]
     Indication: EMPYEMA
     Dosage: UNK UKN, UNK
     Route: 042
     Dates: start: 20130111, end: 20130113
  5. CIPROBAY /01429801/ [Suspect]
     Dosage: UNK
     Route: 048
     Dates: start: 20130111, end: 20130112
  6. BELOC ZOK [Suspect]
     Indication: HYPERTENSION
     Route: 048
  7. TAUROLIN [Suspect]
     Indication: WOUND TREATMENT

REACTIONS (2)
  - Toxic epidermal necrolysis [Recovering/Resolving]
  - Toxic epidermal necrolysis [None]
